FAERS Safety Report 9460264 (Version 2)
Quarter: 2013Q4

REPORT INFORMATION
  Report Type: Spontaneous
  Country: FR (occurrence: FR)
  Receive Date: 20130815
  Receipt Date: 20131007
  Transmission Date: 20140711
  Serious: Yes (Other)
  Sender: FDA-Public Use
  Company Number: FR-PFIZER INC-2013234838

PATIENT
  Age: 79 Year
  Sex: Female

DRUGS (1)
  1. TAHOR [Suspect]
     Indication: HYPERCHOLESTEROLAEMIA
     Dosage: 10 MG, 1X/DAY
     Route: 048
     Dates: start: 20051004, end: 20130518

REACTIONS (14)
  - General physical health deterioration [Unknown]
  - Aortic valve disease [Unknown]
  - Asthenia [Unknown]
  - Fatigue [Unknown]
  - Gait disturbance [Unknown]
  - Muscle atrophy [Unknown]
  - Visual impairment [Unknown]
  - Dyspnoea [Unknown]
  - Tremor [Unknown]
  - Dyskinesia [Unknown]
  - Headache [Unknown]
  - Chest pain [Unknown]
  - Skin discolouration [Unknown]
  - Urinary incontinence [Unknown]
